FAERS Safety Report 8760762 (Version 1)
Quarter: 2012Q4

REPORT INFORMATION
  Report Type: 
  Country: IT (occurrence: IT)
  Receive Date: 20120830
  Receipt Date: 20120830
  Transmission Date: 20130627
  Serious: Yes (Other)
  Sender: FDA-Public Use
  Company Number: IT-ROXANE LABORATORIES, INC.-2012-RO-01751RO

PATIENT
  Age: 43 Year
  Sex: Male

DRUGS (5)
  1. ROPINIROLE [Suspect]
     Indication: PARKINSON^S DISEASE
     Dosage: 16 mg
  2. ALPRAZOLAM [Suspect]
     Indication: PATHOLOGICAL GAMBLING
     Dosage: 0.75 mg
  3. ALPRAZOLAM [Suspect]
     Indication: IMPULSE-CONTROL DISORDER
  4. PAROXETINE [Suspect]
     Indication: PATHOLOGICAL GAMBLING
     Dosage: 60 mg
  5. PAROXETINE [Suspect]
     Indication: IMPULSE-CONTROL DISORDER

REACTIONS (4)
  - Pathological gambling [Recovered/Resolved]
  - Hypersexuality [Unknown]
  - Impulse-control disorder [Recovered/Resolved]
  - Drug ineffective [Unknown]
